FAERS Safety Report 7199442-3 (Version None)
Quarter: 2010Q4

REPORT INFORMATION
  Report Type: 
  Country: None (occurrence: None)
  Receive Date: 20101214
  Receipt Date: 20101202
  Transmission Date: 20110411
  Serious: Yes (Hospitalization)
  Sender: FDA-Public Use
  Company Number: DK-001477

PATIENT
  Sex: Male
  Weight: 82 kg

DRUGS (5)
  1. DEGARELIX (DEGARELIX) 240 MG [Suspect]
     Indication: PROSTATE CANCER
     Dosage: 250 MG SUBCUTANEOUS
     Route: 058
     Dates: start: 20100128, end: 20100128
  2. SIMVASTATIN [Concomitant]
  3. MAGNESIUM [Concomitant]
  4. NEXIUM [Concomitant]
  5. UNIKALK PLUS [Concomitant]

REACTIONS (6)
  - BLOOD CREATININE INCREASED [None]
  - CALCULUS URETERIC [None]
  - DEVICE DISLOCATION [None]
  - HYDRONEPHROSIS [None]
  - LYMPHADENOPATHY [None]
  - METASTASES TO LYMPH NODES [None]
